FAERS Safety Report 12697623 (Version 1)
Quarter: 2016Q3

REPORT INFORMATION
  Report Type: Report from Study
  Country: US (occurrence: US)
  Receive Date: 20160830
  Receipt Date: 20160830
  Transmission Date: 20161109
  Serious: Yes (Hospitalization)
  Sender: FDA-Public Use
  Company Number: US-ARIAD-2013US001641

PATIENT
  Age: 68 Year
  Sex: Male
  Weight: 77 kg

DRUGS (4)
  1. ICLUSIG [Suspect]
     Active Substance: PONATINIB
     Indication: ACUTE LYMPHOCYTIC LEUKAEMIA
     Dosage: 45 MG, QD
     Route: 048
  2. AMLODIPINE [Concomitant]
     Active Substance: AMLODIPINE BESYLATE
     Indication: BLOOD PRESSURE ABNORMAL
     Dosage: 5 MG, BID
     Dates: start: 1998
  3. ACYCLOVIR. [Concomitant]
     Active Substance: ACYCLOVIR
     Indication: PROPHYLAXIS
     Dosage: 400 MG, BID
     Dates: start: 201301
  4. PENTAMIDINE [Concomitant]
     Active Substance: PENTAMIDINE
     Dosage: 4 MG/KG, MONTHLY
     Route: 042

REACTIONS (7)
  - Headache [Unknown]
  - Glucose-6-phosphate dehydrogenase deficiency [Unknown]
  - Skin exfoliation [Not Recovered/Not Resolved]
  - Hypertension [Unknown]
  - Gastritis [Unknown]
  - Pruritus [Unknown]
  - Acute myocardial infarction [Recovered/Resolved]

NARRATIVE: CASE EVENT DATE: 2013
